FAERS Safety Report 7933440-4 (Version None)
Quarter: 2011Q4

REPORT INFORMATION
  Report Type: 
  Country: None (occurrence: None)
  Receive Date: 20111122
  Receipt Date: 20111114
  Transmission Date: 20120403
  Serious: Yes (Hospitalization)
  Sender: FDA-Public Use
  Company Number: IT-JNJFOC-20110912034

PATIENT
  Sex: Female
  Weight: 47 kg

DRUGS (3)
  1. INFLIXIMAB, RECOMBINANT [Suspect]
     Indication: CROHN'S DISEASE
     Route: 042
     Dates: start: 20081021, end: 20081104
  2. MESALAMINE [Concomitant]
  3. ADALIMUMAB [Concomitant]
     Dates: start: 20081125

REACTIONS (1)
  - CROHN'S DISEASE [None]
